FAERS Safety Report 20303774 (Version 1)
Quarter: 2022Q1

REPORT INFORMATION
  Report Type: Spontaneous
  Country: FR (occurrence: FR)
  Receive Date: 20220106
  Receipt Date: 20220106
  Transmission Date: 20220423
  Serious: Yes (Other)
  Sender: FDA-Public Use
  Company Number: None

PATIENT
  Age: 19 Year
  Sex: Male

DRUGS (5)
  1. DIAZEPAM [Suspect]
     Active Substance: DIAZEPAM
     Indication: Product used for unknown indication
     Route: 045
     Dates: start: 20200219, end: 20200219
  2. DIAZEPAM [Suspect]
     Active Substance: DIAZEPAM
     Dosage: 5MG TABLETS ADMINISTERED AT A DOSE OF 50MG (10 DOSAGE FORMS)
     Route: 065
     Dates: start: 20200217, end: 20200217
  3. ZUCLOPENTHIXOL [Suspect]
     Active Substance: ZUCLOPENTHIXOL
     Indication: Product used for unknown indication
     Dosage: (2 AMPOULES), 0MG/1ML (ZUCLOPENTHIXOL DECANOATE) SOLUTION FOR INTRAMUSCULAR INJECTION
     Route: 065
     Dates: start: 20200217, end: 20200217
  4. ALCOHOL [Suspect]
     Active Substance: ALCOHOL
     Indication: Product used for unknown indication
     Dosage: NON RENSEIGNEE
     Route: 048
  5. CANNABIS SATIVA SUBSP. INDICA TOP [Suspect]
     Active Substance: CANNABIS SATIVA SUBSP. INDICA TOP
     Indication: Product used for unknown indication
     Dosage: NON RENSEIGNEE
     Route: 055

REACTIONS (4)
  - Drug abuse [Unknown]
  - Malaise [Recovered/Resolved]
  - Tremor [Recovering/Resolving]
  - Electrocardiogram repolarisation abnormality [Recovering/Resolving]

NARRATIVE: CASE EVENT DATE: 20200219
